FAERS Safety Report 17664733 (Version 1)
Quarter: 2020Q2

REPORT INFORMATION
  Report Type: Spontaneous
  Country: US (occurrence: US)
  Receive Date: 20200413
  Receipt Date: 20200413
  Transmission Date: 20200713
  Serious: Yes (Other)
  Sender: FDA-Public Use
  Company Number: None

PATIENT
  Age: 61 Year
  Sex: Female
  Weight: 58.97 kg

DRUGS (2)
  1. GENERIC XANAX 0.5MG [Suspect]
     Active Substance: ALPRAZOLAM
     Indication: SEIZURE
     Route: 048
     Dates: start: 2017
  2. LEXAPRO [Suspect]
     Active Substance: ESCITALOPRAM OXALATE
     Indication: ANXIETY
     Route: 048
     Dates: start: 201704

REACTIONS (2)
  - Product substitution issue [None]
  - Seizure [None]
